FAERS Safety Report 4558276-6 (Version None)
Quarter: 2005Q1

REPORT INFORMATION
  Report Type: 
  Country: None (occurrence: None)
  Receive Date: 20050103
  Receipt Date: 20041020
  Transmission Date: 20050727
  Serious: Yes (Other)
  Sender: FDA-Public Use
  Company Number: 2004UW21862

PATIENT
  Age: 86 Year
  Sex: Male
  Weight: 86.182 kg

DRUGS (4)
  1. CRESTOR [Suspect]
     Indication: BLOOD CHOLESTEROL INCREASED
     Dosage: 10 MG QD PO
     Route: 048
     Dates: start: 20040101
  2. PROSCAR [Concomitant]
  3. ATENOLOL [Concomitant]
  4. BEXTRA [Concomitant]

REACTIONS (2)
  - HOT FLUSH [None]
  - HYPERHIDROSIS [None]
